FAERS Safety Report 15232047 (Version 1)
Quarter: 2018Q3

REPORT INFORMATION
  Report Type: Spontaneous
  Country: US (occurrence: US)
  Receive Date: 20180708
  Receipt Date: 20180708
  Transmission Date: 20181010
  Serious: Yes (Hospitalization, Disabling, Other)
  Sender: FDA-Public Use
  Company Number: None

PATIENT
  Age: 54 Year
  Sex: Female
  Weight: 76.5 kg

DRUGS (10)
  1. SYNTHROID [Concomitant]
     Active Substance: LEVOTHYROXINE SODIUM
  2. GABIPENTIN [Concomitant]
  3. THERA?TEARS [Concomitant]
  4. BUTRANS [Concomitant]
     Active Substance: BUPRENORPHINE
  5. LEVOFLOXACIN. [Suspect]
     Active Substance: LEVOFLOXACIN
     Indication: EAR INFECTION
     Dosage: ?          QUANTITY:14 DF DOSAGE FORM;?
     Route: 048
     Dates: start: 20150119, end: 20150130
  6. MELOXICAM. [Concomitant]
     Active Substance: MELOXICAM
  7. FLONASE [Concomitant]
     Active Substance: FLUTICASONE PROPIONATE
  8. VITAMIN D [Concomitant]
     Active Substance: CHOLECALCIFEROL
  9. ROVUSTATIN [Concomitant]
     Active Substance: ROSUVASTATIN
  10. MULTI?VITAMIN [Concomitant]
     Active Substance: .ALPHA.-TOCOPHEROL ACETATE, DL-\ASCORBIC ACID\CYANOCOBALAMIN\FLUORIDE ION\FOLIC ACID\NIACIN\PYRIDOXINE\RIBOFLAVIN\THIAMINE\VITAMIN A\VITAMIN D

REACTIONS (12)
  - Dysphagia [None]
  - Pain in extremity [None]
  - Muscle spasms [None]
  - Fatigue [None]
  - Asthenia [None]
  - Dyspnoea [None]
  - Musculoskeletal pain [None]
  - Myalgia [None]
  - Mobility decreased [None]
  - Muscular weakness [None]
  - Arthralgia [None]
  - Musculoskeletal stiffness [None]

NARRATIVE: CASE EVENT DATE: 20150131
